FAERS Safety Report 4897999-6 (Version None)
Quarter: 2006Q1

REPORT INFORMATION
  Report Type: 
  Country: None (occurrence: None)
  Receive Date: 20060106
  Receipt Date: 20051004
  Transmission Date: 20060701
  Serious: No
  Sender: FDA-Public Use
  Company Number: 200512116BWH

PATIENT
  Age: 65 Year
  Sex: Male

DRUGS (4)
  1. LEVITRA [Suspect]
     Indication: ERECTILE DYSFUNCTION
     Dosage: 20 MG, ONCE, ORAL
     Route: 048
     Dates: start: 20051003
  2. VIAGRA [Concomitant]
  3. MYCARDIS [Concomitant]
  4. TOPROL-XL [Concomitant]

REACTIONS (5)
  - DIFFICULTY IN WALKING [None]
  - ERECTILE DYSFUNCTION [None]
  - MYALGIA [None]
  - NAUSEA [None]
  - PAIN IN EXTREMITY [None]
